FAERS Safety Report 11660782 (Version 3)
Quarter: 2016Q1

REPORT INFORMATION
  Report Type: Spontaneous
  Country: JP (occurrence: JP)
  Receive Date: 20151026
  Receipt Date: 20160219
  Transmission Date: 20160525
  Serious: Yes (Other)
  Sender: FDA-Public Use
  Company Number: JP-B.I. PHARMACEUTICALS,INC./RIDGEFIELD-2015-BI-58141NB

PATIENT
  Age: 75 Year
  Sex: Female
  Weight: 30.6 kg

DRUGS (13)
  1. JUVELA N [Concomitant]
     Active Substance: TOCOPHERYL NICOTINATE, D-.ALPHA.
     Indication: PRURITUS
     Dosage: 300 MG
     Route: 048
  2. BENET [Concomitant]
     Active Substance: RISEDRONATE SODIUM
     Indication: OSTEOPOROSIS
     Route: 048
     Dates: start: 20150411
  3. ENBREL [Suspect]
     Active Substance: ETANERCEPT
     Indication: RHEUMATOID ARTHRITIS
     Dosage: 25 MG SYRINGE 0.5 ML
     Route: 058
     Dates: start: 20120127
  4. CARCOPA [Suspect]
     Active Substance: CARBIDOPA\LEVODOPA
     Indication: PARKINSON^S DISEASE
     Dosage: 150 MG
     Route: 048
  5. ENBREL [Suspect]
     Active Substance: ETANERCEPT
     Route: 058
  6. NOURIAST [Suspect]
     Active Substance: ISTRADEFYLLINE
     Indication: PARKINSON^S DISEASE
     Dosage: 40 MG
     Route: 048
     Dates: start: 20150519
  7. ALINAMIN F [Concomitant]
     Active Substance: FURSULTIAMINE HYDROCHLORIDE
     Indication: VITAMIN B1 DEFICIENCY
     Dosage: 25 MG
     Route: 048
     Dates: start: 20131210
  8. MELOXICAM. [Concomitant]
     Active Substance: MELOXICAM
     Indication: RHEUMATOID ARTHRITIS
     Dosage: 10 MG
     Route: 048
     Dates: start: 20150829
  9. FAMOTIDINE D [Concomitant]
     Active Substance: FAMOTIDINE
     Indication: GASTRITIS
     Dosage: 10 MG
     Route: 048
  10. EDIROL [Suspect]
     Active Substance: ELDECALCITOL
     Indication: OSTEOPOROSIS
     Dosage: 0.75 MCG
     Route: 048
     Dates: start: 20131210, end: 20151110
  11. MAGMITT [Concomitant]
     Active Substance: MAGNESIUM OXIDE
     Indication: CONSTIPATION
     Dosage: 330 MG
     Route: 048
  12. MYSLEE [Concomitant]
     Active Substance: ZOLPIDEM TARTRATE
     Indication: INSOMNIA
     Dosage: 10 MG
     Route: 048
     Dates: start: 20150130
  13. MIRAPEX [Suspect]
     Active Substance: PRAMIPEXOLE DIHYDROCHLORIDE
     Indication: PARKINSON^S DISEASE
     Dosage: 0.375 MG
     Route: 048
     Dates: start: 20130618, end: 20151008

REACTIONS (5)
  - Hypokalaemia [Recovered/Resolved]
  - Disorientation [Not Recovered/Not Resolved]
  - Dementia [Unknown]
  - Depressed level of consciousness [Recovered/Resolved]
  - Somnolence [Recovered/Resolved]

NARRATIVE: CASE EVENT DATE: 20151009
